FAERS Safety Report 17754059 (Version 1)
Quarter: 2020Q2

REPORT INFORMATION
  Report Type: Spontaneous
  Country: US (occurrence: US)
  Receive Date: 20200507
  Receipt Date: 20200507
  Transmission Date: 20200714
  Serious: No
  Sender: FDA-Public Use
  Company Number: US-AMGEN-USASP2020068340

PATIENT
  Age: 73 Year
  Sex: Female
  Weight: 73.02 kg

DRUGS (4)
  1. PROLIA [Suspect]
     Active Substance: DENOSUMAB
     Indication: OSTEOPOROSIS POSTMENOPAUSAL
     Dosage: 60 MILLIGRAM, Q6MO
     Route: 065
     Dates: end: 201901
  2. PROLIA [Suspect]
     Active Substance: DENOSUMAB
     Dosage: 60 MILLIGRAM, Q6MO
     Route: 065
     Dates: start: 20200303
  3. CALCIUM [Concomitant]
     Active Substance: CALCIUM
  4. VITAMINE D [Concomitant]
     Active Substance: CHOLECALCIFEROL

REACTIONS (8)
  - Bone loss [Unknown]
  - Weight increased [Unknown]
  - Eye disorder [Unknown]
  - Anxiety [Unknown]
  - Cyst [Unknown]
  - Nasal disorder [Unknown]
  - Intervertebral disc protrusion [Unknown]
  - Weight decreased [Unknown]

NARRATIVE: CASE EVENT DATE: 2019
